FAERS Safety Report 17556553 (Version 2)
Quarter: 2020Q1

REPORT INFORMATION
  Report Type: Report from Study
  Country: AU (occurrence: AU)
  Receive Date: 20200318
  Receipt Date: 20200327
  Transmission Date: 20200409
  Serious: Yes (Hospitalization, Other)
  Sender: FDA-Public Use
  Company Number: NVSC2020AU063805

PATIENT
  Age: 1 Year
  Sex: Female
  Weight: 12.1 kg

DRUGS (3)
  1. LOSEC [Concomitant]
     Active Substance: OMEPRAZOLE
     Indication: GASTROOESOPHAGEAL REFLUX DISEASE
     Dosage: 10 MG
     Route: 065
     Dates: start: 20200228, end: 20200303
  2. PREDNISOLONE. [Suspect]
     Active Substance: PREDNISOLONE
     Indication: PRODUCT USED FOR UNKNOWN INDICATION
     Dosage: 12 MG, QD
     Route: 065
     Dates: start: 20200224, end: 20200303
  3. ONASEMNOGENE ABEPARVOVEC [Suspect]
     Active Substance: ONASEMNOGENE ABEPARVOVEC
     Indication: SPINAL MUSCULAR ATROPHY
     Dosage: 66 ML
     Route: 042
     Dates: start: 20200225

REACTIONS (12)
  - Atypical haemolytic uraemic syndrome [Recovering/Resolving]
  - Microangiopathic haemolytic anaemia [Recovering/Resolving]
  - Thrombocytopenia [Recovering/Resolving]
  - Renal impairment [Recovering/Resolving]
  - Gastrooesophageal reflux disease [Not Recovered/Not Resolved]
  - Irritability [Unknown]
  - Hypertension [Recovering/Resolving]
  - Dehydration [Recovering/Resolving]
  - Thrombotic microangiopathy [Not Recovered/Not Resolved]
  - Renal injury [Unknown]
  - Vomiting [Recovering/Resolving]
  - Transaminases increased [Unknown]

NARRATIVE: CASE EVENT DATE: 20200303
